FAERS Safety Report 9107272 (Version 1)
Quarter: 2013Q1

REPORT INFORMATION
  Report Type: Report from Study
  Country: CA (occurrence: CA)
  Receive Date: 20130221
  Receipt Date: 20130221
  Transmission Date: 20140127
  Serious: Yes (Other)
  Sender: FDA-Public Use
  Company Number: CA-JNJFOC-20130207047

PATIENT
  Age: 50 Year
  Sex: Male
  Weight: 97 kg

DRUGS (2)
  1. REMICADE [Suspect]
     Indication: COLITIS ULCERATIVE
     Route: 042
     Dates: start: 20121113
  2. IMURAN [Concomitant]
     Route: 065

REACTIONS (1)
  - Nephrolithiasis [Recovered/Resolved]
